FAERS Safety Report 18848113 (Version 2)
Quarter: 2021Q1

REPORT INFORMATION
  Report Type: Spontaneous
  Country: US (occurrence: US)
  Receive Date: 20210204
  Receipt Date: 20210304
  Transmission Date: 20210419
  Serious: Yes (Hospitalization)
  Sender: FDA-Public Use
  Company Number: US-SAOL THERAPEUTICS-2021SAO00027

PATIENT
  Age: 46 Year
  Sex: Male
  Weight: 79.82 kg

DRUGS (31)
  1. LIORESAL [Suspect]
     Active Substance: BACLOFEN
     Dosage: UNK; APPROXIMATELY 1100 ?G/DAY
     Route: 037
  2. VALIUM [Concomitant]
     Active Substance: DIAZEPAM
  3. CLARITIN [Concomitant]
     Active Substance: LORATADINE
  4. DITROPAN XL [Concomitant]
     Active Substance: OXYBUTYNIN CHLORIDE
  5. SIMETHICONE (DIMETHICONE) [Concomitant]
     Active Substance: DIMETHICONE
  6. LIORESAL [Suspect]
     Active Substance: BACLOFEN
     Dosage: UNK; SLOWLY WEANED DOWN TO MINIMAL BACLOFEN PRIOR TO PUMP AND CATHETER EXPLANT ON 25?JAN?2021
     Dates: end: 20210125
  7. DURAGESIC [Concomitant]
     Active Substance: FENTANYL
  8. FLONASE [Concomitant]
     Active Substance: FLUTICASONE PROPIONATE
  9. ZOFRAN [Concomitant]
     Active Substance: ONDANSETRON HYDROCHLORIDE
  10. NORFLEX ER [Concomitant]
  11. XARELTO [Concomitant]
     Active Substance: RIVAROXABAN
  12. DULCOLAX NOS [Concomitant]
     Active Substance: BISACODYL OR DOCUSATE SODIUM
  13. ENULOSE [Concomitant]
     Active Substance: LACTULOSE
     Dosage: CONCENTRATION ALSO REPORTED AS 20 GRAM/30 ML
  14. SODIUM CHLORIDE. [Concomitant]
     Active Substance: SODIUM CHLORIDE
  15. TYLENOL [Concomitant]
     Active Substance: ACETAMINOPHEN
  16. ACETIC ACID. [Concomitant]
     Active Substance: ACETIC ACID
  17. NEURONTIN [Concomitant]
     Active Substance: GABAPENTIN
  18. XYLOCAINE [Concomitant]
     Active Substance: LIDOCAINE HYDROCHLORIDE
  19. FLORASTOR [Concomitant]
     Active Substance: SACCHAROMYCES CEREVISIAE
  20. ZOLOFT [Concomitant]
     Active Substance: SERTRALINE HYDROCHLORIDE
  21. HETLIOZ [Concomitant]
     Active Substance: TASIMELTEON
  22. ULTRAM [Concomitant]
     Active Substance: TRAMADOL HYDROCHLORIDE
  23. DILANTIN INFATABS [Concomitant]
     Active Substance: PHENYTOIN
  24. LIORESAL [Concomitant]
     Active Substance: BACLOFEN
  25. MILK OF MAGNESIA [Concomitant]
     Active Substance: MAGNESIUM HYDROXIDE
  26. MIRALAX [Concomitant]
     Active Substance: POLYETHYLENE GLYCOL 3350
  27. DULCOLAX NOS [Concomitant]
     Active Substance: BISACODYL OR DOCUSATE SODIUM
  28. RESTASIS [Concomitant]
     Active Substance: CYCLOSPORINE
  29. HYTONE [Concomitant]
     Active Substance: HYDROCORTISONE
  30. NIZORAL [Concomitant]
     Active Substance: KETOCONAZOLE
  31. REGLAN [Concomitant]
     Active Substance: METOCLOPRAMIDE HYDROCHLORIDE

REACTIONS (3)
  - Sepsis [Unknown]
  - Device related infection [Unknown]
  - Implant site infection [Unknown]

NARRATIVE: CASE EVENT DATE: 20210117
